FAERS Safety Report 19122350 (Version 1)
Quarter: 2021Q2

REPORT INFORMATION
  Report Type: Spontaneous
  Country: US (occurrence: US)
  Receive Date: 20210412
  Receipt Date: 20210412
  Transmission Date: 20210717
  Serious: Yes (Hospitalization, Other)
  Sender: FDA-Public Use
  Company Number: US-HIKMA PHARMACEUTICALS USA INC.-US-H14001-20-04707

PATIENT
  Sex: Female

DRUGS (2)
  1. MORPHINE [Suspect]
     Active Substance: MORPHINE
     Indication: BREAST PAIN
     Route: 065
  2. MORPHINE [Suspect]
     Active Substance: MORPHINE
     Route: 065

REACTIONS (3)
  - Hallucination [Unknown]
  - Drug dependence [Unknown]
  - Drug tolerance increased [Unknown]
